FAERS Safety Report 4357805-5 (Version None)
Quarter: 2004Q2

REPORT INFORMATION
  Report Type: 
  Country: None (occurrence: None)
  Receive Date: 20040513
  Receipt Date: 20030130
  Transmission Date: 20050107
  Serious: Yes (Life-Threatening, Hospitalization, Other)
  Sender: FDA-Public Use
  Company Number: US-MERCK-0301USA03167

PATIENT
  Age: 40 Year
  Sex: Male
  Weight: 86 kg

DRUGS (6)
  1. CATAPRES [Concomitant]
     Route: 065
     Dates: start: 19990101, end: 19991213
  2. LASIX [Concomitant]
     Indication: HYPERTENSION
     Route: 065
     Dates: start: 19890101, end: 20030706
  3. LASIX [Concomitant]
     Indication: OEDEMA PERIPHERAL
     Route: 065
     Dates: start: 19890101, end: 20030706
  4. COZAAR [Concomitant]
     Indication: HYPERTENSION
     Route: 065
     Dates: start: 19800101
  5. VIOXX [Suspect]
     Route: 048
     Dates: start: 19991201, end: 20000401
  6. MICARDIS [Concomitant]
     Indication: HYPERTENSION
     Route: 065
     Dates: start: 19800101

REACTIONS (55)
  - ABDOMINAL ADHESIONS [None]
  - ABDOMINAL PAIN [None]
  - ACUTE RESPIRATORY FAILURE [None]
  - ADRENAL INSUFFICIENCY [None]
  - ANAEMIA OF CHRONIC DISEASE [None]
  - ARTERIOSCLEROSIS [None]
  - ASTHMA [None]
  - BACTERIAL INFECTION [None]
  - BLOOD ERYTHROPOIETIN DECREASED [None]
  - CANDIDIASIS [None]
  - CELLULITIS [None]
  - CHOLECYSTITIS CHRONIC [None]
  - CHOLESTEROSIS [None]
  - COLITIS [None]
  - DECUBITUS ULCER [None]
  - DEEP VEIN THROMBOSIS [None]
  - DIARRHOEA [None]
  - DIVERTICULUM [None]
  - DUODENITIS [None]
  - FUNGAEMIA [None]
  - GASTRITIS [None]
  - GASTROINTESTINAL HAEMORRHAGE [None]
  - GASTROOESOPHAGEAL REFLUX DISEASE [None]
  - GLAUCOMA [None]
  - GYNAECOMASTIA [None]
  - HAEMORRHOIDS [None]
  - HEADACHE [None]
  - HEPATIC STEATOSIS [None]
  - HIATUS HERNIA [None]
  - HYPERCOAGULATION [None]
  - HYPERGLYCAEMIA [None]
  - HYPERTENSION [None]
  - HYPOTENSION [None]
  - INCISIONAL HERNIA [None]
  - INGUINAL HERNIA [None]
  - MALNUTRITION [None]
  - METABOLIC ACIDOSIS [None]
  - OBESITY [None]
  - OESOPHAGITIS [None]
  - OPTIC NEUROPATHY [None]
  - OTITIS MEDIA [None]
  - PICKWICKIAN SYNDROME [None]
  - PNEUMONIA [None]
  - PULMONARY EMBOLISM [None]
  - PULMONARY HYPERTENSION [None]
  - RENAL FAILURE [None]
  - RENAL FAILURE ACUTE [None]
  - RHEUMATOID ARTHRITIS [None]
  - SEPSIS [None]
  - STAPHYLOCOCCAL INFECTION [None]
  - SYNCOPE VASOVAGAL [None]
  - THROMBOCYTOPENIA [None]
  - UMBILICAL HERNIA [None]
  - URINARY TRACT INFECTION [None]
  - VERTIGO [None]
